FAERS Safety Report 5126747-X (Version None)
Quarter: 2006Q4

REPORT INFORMATION
  Report Type: 
  Country: None (occurrence: None)
  Receive Date: 20061013
  Receipt Date: 20061002
  Transmission Date: 20070319
  Serious: Yes (Other)
  Sender: FDA-Public Use
  Company Number: US-AMGEN-US195462

PATIENT
  Age: 62 Year
  Sex: Male

DRUGS (7)
  1. KEPIVANCE [Suspect]
     Indication: STOMATITIS
     Route: 042
  2. LISINOPRIL [Concomitant]
     Route: 065
  3. PANTOPRAZOLE SODIUM [Concomitant]
     Route: 065
  4. TAMSULOSIN HCL [Concomitant]
     Route: 065
  5. FENTANYL [Concomitant]
     Route: 062
  6. OXYCONTIN [Concomitant]
     Route: 048
  7. MELPHALAN [Concomitant]
     Route: 065

REACTIONS (12)
  - CONDITION AGGRAVATED [None]
  - DYSGEUSIA [None]
  - DYSPNOEA [None]
  - MACROGLOSSIA [None]
  - MUCOSAL INFLAMMATION [None]
  - NEUTROPENIA [None]
  - OEDEMA PERIPHERAL [None]
  - ORAL PAIN [None]
  - OSTEONECROSIS [None]
  - PAIN IN EXTREMITY [None]
  - PALMAR ERYTHEMA [None]
  - SWELLING FACE [None]
